FAERS Safety Report 9345979 (Version 1)
Quarter: 2013Q2

REPORT INFORMATION
  Report Type: Spontaneous
  Country: JP (occurrence: JP)
  Receive Date: 20130613
  Receipt Date: 20130613
  Transmission Date: 20140414
  Serious: Yes (Other)
  Sender: FDA-Public Use
  Company Number: JP-ASTELLAS-2013JP006569

PATIENT
  Sex: Female

DRUGS (2)
  1. PROGRAF [Suspect]
     Route: 048
  2. PARLODEL [Concomitant]
     Route: 048

REACTIONS (3)
  - Haematuria [Unknown]
  - Renal cyst [Unknown]
  - Back pain [Unknown]
